FAERS Safety Report 9161207 (Version 1)
Quarter: 2013Q1

REPORT INFORMATION
  Report Type: Spontaneous
  Country: US (occurrence: US)
  Receive Date: 20130313
  Receipt Date: 20130313
  Transmission Date: 20140127
  Serious: Yes (Other)
  Sender: FDA-Public Use
  Company Number: US-009507513-1109USA00872

PATIENT
  Age: 65 Year
  Sex: Male

DRUGS (5)
  1. JANUMET [Suspect]
     Indication: DIABETES MELLITUS
     Dosage: 1 DF, BID
     Route: 048
     Dates: end: 20110310
  2. JANUVIA [Suspect]
     Route: 048
  3. METFORMIN [Suspect]
  4. ACTOS [Concomitant]
     Indication: DIABETES MELLITUS
     Dosage: 15 MG, QD
     Route: 048
     Dates: end: 20110310
  5. LANTUS [Concomitant]

REACTIONS (2)
  - Drug eruption [Recovered/Resolved]
  - Rash generalised [Recovered/Resolved]
